FAERS Safety Report 6203490-7 (Version None)
Quarter: 2009Q2

REPORT INFORMATION
  Report Type: 
  Country: None (occurrence: None)
  Receive Date: 20090527
  Receipt Date: 20090519
  Transmission Date: 20091009
  Serious: No
  Sender: FDA-Public Use
  Company Number: US-ELI_LILLY_AND_COMPANY-US200905004026

PATIENT
  Age: 8 Year
  Sex: Male
  Weight: 28.571 kg

DRUGS (1)
  1. STRATTERA [Suspect]
     Indication: ATTENTION DEFICIT/HYPERACTIVITY DISORDER
     Dosage: 36 MG, DAILY (1/D)
     Route: 065
     Dates: start: 20071101, end: 20090517

REACTIONS (4)
  - ABDOMINAL PAIN UPPER [None]
  - ANGER [None]
  - HEADACHE [None]
  - SOMNOLENCE [None]
